FAERS Safety Report 21577284 (Version 2)
Quarter: 2022Q4

REPORT INFORMATION
  Report Type: Spontaneous
  Country: JP (occurrence: JP)
  Receive Date: 20221110
  Receipt Date: 20221213
  Transmission Date: 20230113
  Serious: Yes (Hospitalization)
  Sender: FDA-Public Use
  Company Number: JP-MYLANLABS-2022M1120400

PATIENT
  Age: 86 Year
  Sex: Female
  Weight: 44 kg

DRUGS (5)
  1. CELECOXIB [Suspect]
     Active Substance: CELECOXIB
     Indication: Back pain
     Dosage: 100 MILLIGRAM, BID
     Route: 048
     Dates: start: 20220919, end: 20221002
  2. REBAMIPIDE [Suspect]
     Active Substance: REBAMIPIDE
     Indication: Back pain
     Dosage: 100 MILLIGRAM, BID
     Route: 065
     Dates: start: 20220919, end: 20221002
  3. IMIDAPRIL [Concomitant]
     Active Substance: IMIDAPRIL
     Indication: Product used for unknown indication
     Route: 048
  4. LEVOTHYROXINE SODIUM [Concomitant]
     Active Substance: LEVOTHYROXINE SODIUM
     Indication: Product used for unknown indication
     Route: 048
  5. RILMAZAFONE HYDROCHLORIDE [Concomitant]
     Active Substance: RILMAZAFONE HYDROCHLORIDE
     Indication: Product used for unknown indication
     Route: 048

REACTIONS (1)
  - Toxic skin eruption [Recovering/Resolving]

NARRATIVE: CASE EVENT DATE: 20220930
